FAERS Safety Report 14472571 (Version 1)
Quarter: 2018Q1

REPORT INFORMATION
  Report Type: Spontaneous
  Country: NO (occurrence: NO)
  Receive Date: 20180201
  Receipt Date: 20180201
  Transmission Date: 20180509
  Serious: Yes (Hospitalization)
  Sender: FDA-Public Use
  Company Number: PHHY2018NO012985

PATIENT
  Age: 19 Year
  Sex: Female
  Weight: 35 kg

DRUGS (1)
  1. ESTRADOT [Suspect]
     Active Substance: ESTRADIOL
     Indication: AMENORRHOEA
     Dosage: 25 UG, QD
     Route: 062

REACTIONS (2)
  - Malignant hypertension [Unknown]
  - Off label use [Unknown]
